FAERS Safety Report 11249294 (Version 1)
Quarter: 2015Q3

REPORT INFORMATION
  Report Type: Spontaneous
  Country: US (occurrence: US)
  Receive Date: 20150708
  Receipt Date: 20150708
  Transmission Date: 20151125
  Serious: No
  Sender: FDA-Public Use
  Company Number: US-ELI_LILLY_AND_COMPANY-US200912002498

PATIENT
  Age: 67 Year
  Sex: Male

DRUGS (5)
  1. VITAMIN B12 [Concomitant]
     Active Substance: CYANOCOBALAMIN
  2. ALIMTA [Suspect]
     Active Substance: PEMETREXED DISODIUM
     Indication: LUNG ADENOCARCINOMA
     Dosage: UNK, OTHER: EVERY 3 WKS
     Route: 042
     Dates: start: 2009
  3. ANTIEMETICS AND ANTINAUSEANTS [Concomitant]
     Active Substance: UNSPECIFIED INGREDIENT
     Indication: NAUSEA
  4. FOLIC ACID. [Concomitant]
     Active Substance: FOLIC ACID
  5. IRON [Concomitant]
     Active Substance: IRON

REACTIONS (7)
  - Hyperhidrosis [Not Recovered/Not Resolved]
  - Asthenia [Not Recovered/Not Resolved]
  - Dysphagia [Recovered/Resolved]
  - Erythema [Not Recovered/Not Resolved]
  - Weight decreased [Recovering/Resolving]
  - Feeling abnormal [Not Recovered/Not Resolved]
  - Lacrimal disorder [Not Recovered/Not Resolved]

NARRATIVE: CASE EVENT DATE: 2009
